FAERS Safety Report 20803076 (Version 8)
Quarter: 2024Q3

REPORT INFORMATION
  Report Type: Spontaneous
  Country: IN (occurrence: IN)
  Receive Date: 20220509
  Receipt Date: 20240926
  Transmission Date: 20241017
  Serious: Yes (Other)
  Sender: PFIZER
  Company Number: IN-PFIZER INC-2021006350

PATIENT
  Age: 63 Year
  Sex: Female

DRUGS (7)
  1. SUTENT [Suspect]
     Active Substance: SUNITINIB MALATE
     Dosage: 37.5 MG 2 WEEKS ON 1 WEEK OFF
     Route: 048
     Dates: start: 2011
  2. SUTENT [Suspect]
     Active Substance: SUNITINIB MALATE
     Dosage: UNK
     Route: 048
     Dates: end: 20220211
  3. SUTENT [Suspect]
     Active Substance: SUNITINIB MALATE
     Dosage: UNK
     Route: 048
     Dates: start: 20220320
  4. SUTENT [Suspect]
     Active Substance: SUNITINIB MALATE
     Dosage: 28 DAYS ON 14 DAYS OFF
     Route: 048
     Dates: start: 202304, end: 202305
  5. SUTENT [Suspect]
     Active Substance: SUNITINIB MALATE
     Dosage: 37.5 MG
     Route: 048
     Dates: end: 20240723
  6. PYRIDOXINE HYDROCHLORIDE [Concomitant]
     Active Substance: PYRIDOXINE HYDROCHLORIDE
     Dosage: 1-0-0 X 45 DAYS
  7. COTARYL [Concomitant]
     Dosage: 0-0-1 X 45 DAYS

REACTIONS (4)
  - Intestinal perforation [Unknown]
  - Cataract [Unknown]
  - Gingivitis [Unknown]
  - Blood pressure increased [Unknown]

NARRATIVE: CASE EVENT DATE: 20230706
